FAERS Safety Report 7413703-1 (Version None)
Quarter: 2011Q2

REPORT INFORMATION
  Report Type: 
  Country: None (occurrence: None)
  Receive Date: 20110413
  Receipt Date: 20110408
  Transmission Date: 20111010
  Serious: Yes (Hospitalization)
  Sender: FDA-Public Use
  Company Number: CO-ROCHE-770572

PATIENT
  Sex: Female
  Weight: 85.4 kg

DRUGS (12)
  1. BLINDED BEVACIZUMAB [Suspect]
     Indication: DIFFUSE LARGE B-CELL LYMPHOMA
     Dosage: DATE OF LAST DOSE PRIOR TO SAE: 28 MAY 2010; FORM: LIQUID FREQUENCY:ONE DOSES
     Route: 042
     Dates: start: 20100211
  2. DOXORUBICIN [Suspect]
     Indication: DIFFUSE LARGE B-CELL LYMPHOMA
     Dosage: ROUTE TAKEN (FROM PROTOCOL)
     Route: 042
     Dates: start: 20100211
  3. ACETAMINOPHEN [Concomitant]
     Dates: start: 20091213
  4. DIPHENHYDRAMINE HYDROCHLORIDE [Concomitant]
     Dates: start: 20100211
  5. VINCRISTINE [Suspect]
     Indication: DIFFUSE LARGE B-CELL LYMPHOMA
     Dosage: ROUTE TAKEN FROM PROTOCOL
     Route: 042
     Dates: start: 20100211
  6. TRAMADOL [Concomitant]
     Dates: start: 20110407
  7. METOCLOPRAMIDE [Concomitant]
     Dates: start: 20110407
  8. OMEPRAZOLE [Concomitant]
     Dates: start: 20110407
  9. CYCLOPHOSPHAMIDE [Suspect]
     Indication: DIFFUSE LARGE B-CELL LYMPHOMA
     Dosage: ROUTE TAKEN (FROM PROTOCOL)
     Route: 042
     Dates: start: 20100211
  10. PREDNISONE [Suspect]
     Indication: DIFFUSE LARGE B-CELL LYMPHOMA
     Dosage: DAY 1-5; EVERY 21 DAYS
     Route: 048
     Dates: start: 20100211
  11. VERAPAMIL [Concomitant]
     Dates: start: 20060101
  12. RITUXIMAB [Suspect]
     Indication: DIFFUSE LARGE B-CELL LYMPHOMA
     Dosage: FORM: INFUSION (FROM PROTOCOL)
     Route: 042
     Dates: start: 20100211

REACTIONS (1)
  - LYMPHADENOPATHY [None]
